FAERS Safety Report 12477247 (Version 1)
Quarter: 2016Q2

REPORT INFORMATION
  Report Type: Spontaneous
  Country: US (occurrence: US)
  Receive Date: 20160617
  Receipt Date: 20160617
  Transmission Date: 20160815
  Serious: Yes (Other)
  Sender: FDA-Public Use
  Company Number: US-ALLERGAN-1657383US

PATIENT
  Age: 5 Decade
  Sex: Female

DRUGS (1)
  1. VIBERZI [Suspect]
     Active Substance: ELUXADOLINE
     Indication: IRRITABLE BOWEL SYNDROME
     Dosage: 100 MG, BID
     Route: 048
     Dates: start: 201605, end: 201605

REACTIONS (4)
  - Incorrect dosage administered [Unknown]
  - Vomiting [Unknown]
  - Abdominal pain [Unknown]
  - Pancreatitis [Unknown]

NARRATIVE: CASE EVENT DATE: 201605
